FAERS Safety Report 16061458 (Version 1)
Quarter: 2019Q1

REPORT INFORMATION
  Report Type: Spontaneous
  Country: US (occurrence: US)
  Receive Date: 20190312
  Receipt Date: 20190312
  Transmission Date: 20190418
  Serious: No
  Sender: FDA-Public Use
  Company Number: US-ROCHE-2234143

PATIENT
  Age: 58 Year
  Sex: Male

DRUGS (5)
  1. NIVOLUMAB [Concomitant]
     Active Substance: NIVOLUMAB
     Route: 065
  2. INTERFERON ALFA-2B [Concomitant]
     Active Substance: INTERFERON ALFA-2B
     Route: 065
  3. NIVOLUMAB [Concomitant]
     Active Substance: NIVOLUMAB
     Route: 065
  4. TRASTUZUMAB EMTANSINE [Suspect]
     Active Substance: ADO-TRASTUZUMAB EMTANSINE
     Indication: MALIGNANT MELANOMA
     Route: 042
  5. IPILIMUMAB [Concomitant]
     Active Substance: IPILIMUMAB
     Route: 065

REACTIONS (4)
  - Transaminases increased [Unknown]
  - Off label use [Unknown]
  - Hepatic mass [Unknown]
  - Intentional product use issue [Unknown]
